FAERS Safety Report 6703636-8 (Version None)
Quarter: 2010Q2

REPORT INFORMATION
  Report Type: 
  Country: None (occurrence: None)
  Receive Date: 20100430
  Receipt Date: 20100419
  Transmission Date: 20101027
  Serious: Yes (Death, Other)
  Sender: FDA-Public Use
  Company Number: US-TYCO HEALTHCARE/MALLINCKRODT-T200901646

PATIENT
  Age: 42 Year
  Sex: Male

DRUGS (8)
  1. OCTREOSCAN [Suspect]
     Indication: SOMATOSTATIN ANALOGUE THERAPY
     Dosage: 6 MCI, SINGLE
     Route: 042
     Dates: start: 19970101, end: 19970101
  2. OCTREOSCAN [Suspect]
     Indication: SOMATOSTATIN RECEPTOR SCAN
     Dosage: UNK
     Route: 042
     Dates: start: 19970101, end: 19970101
  3. OCTREOSCAN [Suspect]
     Dosage: UNK
     Route: 042
     Dates: start: 19970101, end: 19970101
  4. OCTREOSCAN [Suspect]
     Dosage: UNK
     Route: 042
     Dates: start: 19970101, end: 19970101
  5. INDIUM (111 IN) [Suspect]
     Indication: SOMATOSTATIN ANALOGUE THERAPY
     Dosage: 180 MCI, SINGLE
     Route: 042
     Dates: start: 19970101, end: 19970101
  6. INDIUM (111 IN) [Suspect]
     Dosage: 180 MCI, SINGLE
     Route: 042
     Dates: start: 19970101, end: 19970101
  7. INDIUM (111 IN) [Suspect]
     Dosage: 180 MCI, SINGLE
     Route: 042
     Dates: start: 19970101, end: 19970101
  8. INTERFERON [Concomitant]
     Dosage: UNK

REACTIONS (5)
  - DEATH [None]
  - HAEMATOTOXICITY [None]
  - INTENTIONAL DRUG MISUSE [None]
  - NEUROTOXICITY [None]
  - PLATELET TOXICITY [None]
